FAERS Safety Report 6441266-6 (Version None)
Quarter: 2009Q4

REPORT INFORMATION
  Report Type: 
  Country: None (occurrence: None)
  Receive Date: 20091116
  Receipt Date: 20091109
  Transmission Date: 20100525
  Serious: Yes (Hospitalization)
  Sender: FDA-Public Use
  Company Number: US-ELI_LILLY_AND_COMPANY-US200911002106

PATIENT
  Sex: Male

DRUGS (8)
  1. HUMALOG [Suspect]
     Dosage: 14 U, AS NEEDED
     Dates: start: 20080901
  2. HUMALOG [Suspect]
     Dosage: 14 U, AS NEEDED
     Dates: start: 20080901
  3. HUMALOG [Suspect]
     Dosage: 14 U, AS NEEDED
     Dates: start: 20080901
  4. METFORMIN HCL [Concomitant]
  5. NEXIUM [Concomitant]
  6. LISINOPRIL [Concomitant]
  7. SUCRALFATE [Concomitant]
  8. GLIMEPIRIDE [Concomitant]

REACTIONS (7)
  - BLOOD GLUCOSE DECREASED [None]
  - BLOOD GLUCOSE INCREASED [None]
  - FATIGUE [None]
  - INCORRECT DOSE ADMINISTERED [None]
  - MALAISE [None]
  - SLUGGISHNESS [None]
  - WRONG TECHNIQUE IN DRUG USAGE PROCESS [None]
